FAERS Safety Report 18685420 (Version 2)
Quarter: 2021Q1

REPORT INFORMATION
  Report Type: Spontaneous
  Country: US (occurrence: US)
  Receive Date: 20201230
  Receipt Date: 20210303
  Transmission Date: 20210419
  Serious: Yes (Hospitalization, Other)
  Sender: FDA-Public Use
  Company Number: US-TEVA-2020-US-1863547

PATIENT
  Age: 75 Year
  Sex: Male
  Weight: 106.5 kg

DRUGS (35)
  1. VALSARTAN/HYDROCHLOROTHIAZIDE NOVARTIS [Suspect]
     Active Substance: HYDROCHLOROTHIAZIDE\VALSARTAN
     Indication: HYPERTENSION
     Dosage: DOSAGE : 320/12.5MG
     Route: 065
  2. DIOVAN HCT [Suspect]
     Active Substance: HYDROCHLOROTHIAZIDE\VALSARTAN
     Indication: HYPERTENSION
     Dosage: DOSAGE : 320?12.5MG ONCE A DAY
     Route: 065
     Dates: start: 20100104, end: 20140604
  3. VALSARTAN/HYDROCHLOROTHIAZIDE ACTAVIS [Suspect]
     Active Substance: HYDROCHLOROTHIAZIDE\VALSARTAN
     Indication: HYPERTENSION
     Dosage: DOSAGE : 320/12.5MG
     Route: 065
     Dates: start: 20161228, end: 20170327
  4. VALSARTAN/HYDROCHLOROTHIAZIDE [Suspect]
     Active Substance: HYDROCHLOROTHIAZIDE\VALSARTAN
     Dosage: DOSAGE : 320/12.5MG
     Route: 065
     Dates: start: 20170327, end: 20181003
  5. HYDROCHLOROTHIAZIDE. [Concomitant]
     Active Substance: HYDROCHLOROTHIAZIDE
     Indication: HYPERTENSION
  6. TYLENOL [Concomitant]
     Active Substance: ACETAMINOPHEN
     Indication: PAIN
  7. METRONIDAZOLE. [Concomitant]
     Active Substance: METRONIDAZOLE
     Indication: ARRHYTHMIA
  8. VALSARTAN/HYDROCHLOROTHIAZIDE ACETERIS/AUROBINDO [Suspect]
     Active Substance: HYDROCHLOROTHIAZIDE\VALSARTAN
     Indication: HYPERTENSION
     Dosage: DOSAGE : 320/12.5MG
     Route: 065
     Dates: start: 20130722, end: 20130925
  9. VALSARTAN/HYDROCHLOROTHIAZIDE ACETERIS/AUROBINDO [Suspect]
     Active Substance: HYDROCHLOROTHIAZIDE\VALSARTAN
     Dosage: DOSAGE : 320/12.5MG
     Route: 065
     Dates: start: 20131019, end: 20160705
  10. LOPID [Concomitant]
     Active Substance: GEMFIBROZIL
     Indication: HYPERLIPIDAEMIA
     Dosage: 600 MILLIGRAM DAILY;
     Dates: start: 20160526, end: 20190520
  11. LOPRESSOR [Concomitant]
     Active Substance: METOPROLOL TARTRATE
     Dosage: 100 MILLIGRAM DAILY;
     Dates: start: 2015, end: 20181118
  12. TYLENOL [Concomitant]
     Active Substance: ACETAMINOPHEN
     Indication: HEADACHE
     Dosage: ONGOING, AS NEEDED
     Dates: start: 20160101
  13. COLACE [Concomitant]
     Active Substance: DOCUSATE SODIUM
     Dosage: 100 MG TWICE DAILY
     Route: 048
  14. VALSARTAN/HYDROCHLOROTHIAZIDE TEVA [Suspect]
     Active Substance: HYDROCHLOROTHIAZIDE\VALSARTAN
     Indication: HYPERTENSION
     Dosage: DOSAGE : 320/12.5MG
     Route: 065
     Dates: start: 20130124, end: 20130722
  15. VALSARTAN/HYDROCHLOROTHIAZIDE [Suspect]
     Active Substance: HYDROCHLOROTHIAZIDE\VALSARTAN
     Dosage: DOSAGE : 320/12.5MG ONCE A DAY
     Route: 065
     Dates: start: 20160407, end: 20180922
  16. AVAPRO [Concomitant]
     Active Substance: IRBESARTAN
     Dosage: 300 MILLIGRAM DAILY;
     Dates: start: 20190330, end: 20190701
  17. ASPIRIN. [Concomitant]
     Active Substance: ASPIRIN
     Dosage: 81 MILLIGRAM DAILY;
     Route: 048
  18. NEOMYCIN. [Concomitant]
     Active Substance: NEOMYCIN
     Dosage: 500MG
     Route: 048
  19. VALSARTAN/HYDROCHLOROTHIAZIDE TEVA [Suspect]
     Active Substance: HYDROCHLOROTHIAZIDE\VALSARTAN
     Dosage: DOSAGE : 320/12.5MG
     Route: 065
     Dates: start: 20130925, end: 20131019
  20. FENOFIBRATE. [Concomitant]
     Active Substance: FENOFIBRATE
     Dosage: 134 MILLIGRAM DAILY;
     Dates: start: 20160407, end: 20190520
  21. LOPRESSOR [Concomitant]
     Active Substance: METOPROLOL TARTRATE
     Indication: HYPERTENSION
     Dosage: 100 MILLIGRAM DAILY; ONGOING
     Dates: start: 20101008
  22. VALSARTAN/HYDROCHLOROTHIAZIDE [Suspect]
     Active Substance: HYDROCHLOROTHIAZIDE\VALSARTAN
     Dosage: DOSAGE : 320/12.5MG ONCE A DAY
     Route: 065
     Dates: start: 20120925, end: 20160407
  23. VALSARTAN/HYDROCHLOROTHIAZIDE QUALITEST PHARMA [Suspect]
     Active Substance: HYDROCHLOROTHIAZIDE\VALSARTAN
     Indication: HYPERTENSION
     Dosage: DOSAGE : 320/12.5MG
     Route: 065
  24. VALSARTAN/HYDROCHLOROTHIAZIDE MACLEODS [Suspect]
     Active Substance: HYDROCHLOROTHIAZIDE\VALSARTAN
     Indication: HYPERTENSION
     Dosage: DOSAGE : 320/12.5MG
     Route: 065
  25. HYDROCHLOROTHIAZIDE. [Concomitant]
     Active Substance: HYDROCHLOROTHIAZIDE
     Indication: POLYURIA
     Dosage: 25 MILLIGRAM DAILY;
     Dates: start: 20161028
  26. LOVASTATIN. [Concomitant]
     Active Substance: LOVASTATIN
     Indication: HYPERLIPIDAEMIA
     Dosage: 40 MILLIGRAM DAILY;
     Dates: start: 20160407, end: 20170413
  27. HYDRALAZINE [Concomitant]
     Active Substance: HYDRALAZINE HYDROCHLORIDE
     Indication: HYPERTENSION
     Dosage: 10 MILLIGRAM DAILY; ONGOING
     Dates: start: 20181218
  28. AVAPRO [Concomitant]
     Active Substance: IRBESARTAN
     Indication: HYPERTENSION
     Dosage: 300 MILLIGRAM DAILY;
     Dates: start: 20181003, end: 20190102
  29. ZOFRAN [Concomitant]
     Active Substance: ONDANSETRON HYDROCHLORIDE
     Indication: NAUSEA
     Dosage: 4 MG EVERY 8 HOURS
     Route: 048
  30. VALSARTAN/HYDROCHLOROTHIAZIDE [Suspect]
     Active Substance: HYDROCHLOROTHIAZIDE\VALSARTAN
     Indication: HYPERTENSION
     Dosage: DOSAGE : 320/12.5MG
     Route: 065
     Dates: start: 20160705, end: 20161228
  31. NORVASC [Concomitant]
     Active Substance: AMLODIPINE BESYLATE
     Indication: HYPERTENSION
     Dosage: 10 MILLIGRAM DAILY;
     Dates: start: 20101008, end: 20190701
  32. NORVASC [Concomitant]
     Active Substance: AMLODIPINE BESYLATE
     Dosage: 10 MILLIGRAM DAILY;
     Dates: start: 20150728, end: 20190702
  33. FENOFIBRATE. [Concomitant]
     Active Substance: FENOFIBRATE
     Indication: HYPERLIPIDAEMIA
     Dosage: 134 MILLIGRAM DAILY;
     Dates: start: 20110825, end: 20160407
  34. LOVASTATIN. [Concomitant]
     Active Substance: LOVASTATIN
     Dosage: 40 MILLIGRAM DAILY;
     Dates: start: 20110825, end: 20160407
  35. SIMVASTATIN. [Concomitant]
     Active Substance: SIMVASTATIN
     Indication: HYPERTENSION
     Dosage: 40 MILLIGRAM DAILY;
     Dates: start: 20101008, end: 20110603

REACTIONS (1)
  - Colon cancer stage I [Not Recovered/Not Resolved]
